FAERS Safety Report 15667030 (Version 1)
Quarter: 2018Q4

REPORT INFORMATION
  Report Type: Spontaneous
  Country: US (occurrence: US)
  Receive Date: 20181128
  Receipt Date: 20181128
  Transmission Date: 20190205
  Serious: No
  Sender: FDA-Public Use
  Company Number: US-ROCHE-2173946

PATIENT
  Age: 54 Year
  Sex: Female
  Weight: 80.36 kg

DRUGS (1)
  1. OCREVUS [Suspect]
     Active Substance: OCRELIZUMAB
     Indication: RELAPSING-REMITTING MULTIPLE SCLEROSIS
     Dosage: FIRST DOSE ;ONGOING: YES
     Route: 041
     Dates: start: 20180806

REACTIONS (1)
  - Feeling hot [Recovered/Resolved]

NARRATIVE: CASE EVENT DATE: 20180807
